FAERS Safety Report 9663592 (Version 1)
Quarter: 2013Q4

REPORT INFORMATION
  Report Type: Spontaneous
  Country: US (occurrence: US)
  Receive Date: 20131101
  Receipt Date: 20131101
  Transmission Date: 20140711
  Serious: No
  Sender: FDA-Public Use
  Company Number: US-PFIZER INC-2013311558

PATIENT
  Age: 61 Year
  Sex: Female
  Weight: 63.49 kg

DRUGS (4)
  1. CELEBREX [Suspect]
     Indication: BACK PAIN
     Dosage: 200 MG, DAILY
     Dates: start: 201301, end: 20131010
  2. ADVIL [Suspect]
     Indication: BACK PAIN
     Dosage: UNK
  3. HYDROCODONE [Suspect]
     Indication: BACK PAIN
     Dosage: 250 MG, EVERY 12 HOURS
     Dates: start: 201209, end: 201301
  4. TRAMADOL [Concomitant]
     Indication: BACK PAIN
     Dosage: 50 MG, AS NEEDED
     Route: 048

REACTIONS (4)
  - Headache [Recovered/Resolved]
  - Nausea [Recovered/Resolved]
  - Back pain [Unknown]
  - Drug ineffective [Unknown]
